FAERS Safety Report 19924070 (Version 8)
Quarter: 2023Q4

REPORT INFORMATION
  Report Type: Spontaneous
  Country: DE (occurrence: DE)
  Receive Date: 20211006
  Receipt Date: 20231113
  Transmission Date: 20240109
  Serious: Yes (Life-Threatening, Hospitalization, Other)
  Sender: FDA-Public Use
  Company Number: DE-NOVARTIS PHARMA AG-002147023-NVSC2020DE297876

PATIENT

DRUGS (150)
  1. DICLOFENAC [Suspect]
     Active Substance: DICLOFENAC
     Indication: Product used for unknown indication
     Dosage: UNK
     Route: 065
  2. ACETAMINOPHEN [Suspect]
     Active Substance: ACETAMINOPHEN
     Indication: Product used for unknown indication
     Dosage: UNK
     Route: 065
  3. ACETAMINOPHEN [Suspect]
     Active Substance: ACETAMINOPHEN
     Dosage: UNK
     Route: 065
  4. ACETAMINOPHEN [Suspect]
     Active Substance: ACETAMINOPHEN
     Dosage: UNK
     Route: 065
  5. ACETAMINOPHEN [Suspect]
     Active Substance: ACETAMINOPHEN
     Dosage: UNK
     Route: 065
  6. IBUPROFEN [Suspect]
     Active Substance: IBUPROFEN
     Indication: Product used for unknown indication
     Dosage: UNK
     Route: 065
  7. IBUPROFEN [Suspect]
     Active Substance: IBUPROFEN
     Dosage: UNK
     Route: 065
  8. IBUPROFEN [Suspect]
     Active Substance: IBUPROFEN
     Dosage: UNK
     Route: 065
  9. IBUPROFEN [Suspect]
     Active Substance: IBUPROFEN
     Dosage: UNK
     Route: 065
  10. ASPIRIN [Suspect]
     Active Substance: ASPIRIN
     Indication: Product used for unknown indication
     Dosage: UNK
     Route: 065
  11. HYDROCHLOROTHIAZIDE\VALSARTAN [Suspect]
     Active Substance: HYDROCHLOROTHIAZIDE\VALSARTAN
     Indication: Hypertension
     Dosage: 1 DF, QD (IN MORNING 1-0-0)
     Route: 065
     Dates: start: 201407, end: 201407
  12. HYDROCHLOROTHIAZIDE\VALSARTAN [Suspect]
     Active Substance: HYDROCHLOROTHIAZIDE\VALSARTAN
     Dosage: UNK
     Route: 065
     Dates: start: 20140707
  13. HYDROCHLOROTHIAZIDE\VALSARTAN [Suspect]
     Active Substance: HYDROCHLOROTHIAZIDE\VALSARTAN
     Dosage: 1 DF, QD (IN MORNING, 1-0-0)
     Route: 065
     Dates: start: 201410, end: 201704
  14. HYDROCHLOROTHIAZIDE\VALSARTAN [Suspect]
     Active Substance: HYDROCHLOROTHIAZIDE\VALSARTAN
     Dosage: UNK
     Route: 065
     Dates: start: 20141014
  15. HYDROCHLOROTHIAZIDE\VALSARTAN [Suspect]
     Active Substance: HYDROCHLOROTHIAZIDE\VALSARTAN
     Dosage: UNK
     Route: 065
     Dates: start: 20150102
  16. HYDROCHLOROTHIAZIDE\VALSARTAN [Suspect]
     Active Substance: HYDROCHLOROTHIAZIDE\VALSARTAN
     Dosage: UNK
     Route: 065
     Dates: start: 20150415
  17. HYDROCHLOROTHIAZIDE\VALSARTAN [Suspect]
     Active Substance: HYDROCHLOROTHIAZIDE\VALSARTAN
     Dosage: UNK
     Route: 065
     Dates: start: 20150611
  18. HYDROCHLOROTHIAZIDE\VALSARTAN [Suspect]
     Active Substance: HYDROCHLOROTHIAZIDE\VALSARTAN
     Dosage: UNK
     Route: 065
     Dates: start: 20160427
  19. HYDROCHLOROTHIAZIDE\VALSARTAN [Suspect]
     Active Substance: HYDROCHLOROTHIAZIDE\VALSARTAN
     Dosage: UNK
     Route: 065
     Dates: start: 20160804
  20. HYDROCHLOROTHIAZIDE\VALSARTAN [Suspect]
     Active Substance: HYDROCHLOROTHIAZIDE\VALSARTAN
     Dosage: UNK
     Route: 065
     Dates: start: 20170112
  21. HYDROCHLOROTHIAZIDE\VALSARTAN [Suspect]
     Active Substance: HYDROCHLOROTHIAZIDE\VALSARTAN
     Dosage: UNK UNK, QD
     Route: 065
     Dates: end: 20170725
  22. HYDROCHLOROTHIAZIDE\VALSARTAN [Suspect]
     Active Substance: HYDROCHLOROTHIAZIDE\VALSARTAN
     Dosage: UNK
     Route: 065
  23. HYDROCHLOROTHIAZIDE\VALSARTAN [Suspect]
     Active Substance: HYDROCHLOROTHIAZIDE\VALSARTAN
     Dosage: UNK
     Route: 065
     Dates: start: 201407, end: 201407
  24. HYDROCHLOROTHIAZIDE\VALSARTAN [Suspect]
     Active Substance: HYDROCHLOROTHIAZIDE\VALSARTAN
     Dosage: UNK
     Route: 065
     Dates: start: 201410, end: 201704
  25. VALSARTAN [Suspect]
     Active Substance: VALSARTAN
     Indication: Hypertension
     Dosage: 80 MG
     Route: 065
     Dates: start: 20140707
  26. VALSARTAN [Suspect]
     Active Substance: VALSARTAN
     Indication: Hypertension
     Dosage: UNK
     Route: 065
     Dates: start: 20140707
  27. VALSARTAN [Suspect]
     Active Substance: VALSARTAN
     Dosage: UNK
     Route: 065
     Dates: start: 20140707
  28. VALSARTAN [Suspect]
     Active Substance: VALSARTAN
     Dosage: 80 MG, QD
     Route: 065
     Dates: start: 201407, end: 201410
  29. VALSARTAN [Suspect]
     Active Substance: VALSARTAN
     Dosage: 80 MG
     Route: 065
     Dates: start: 201407, end: 201410
  30. VALSARTAN [Suspect]
     Active Substance: VALSARTAN
     Dosage: UNK
     Route: 065
     Dates: start: 201410, end: 201704
  31. VALSARTAN [Suspect]
     Active Substance: VALSARTAN
     Dosage: UNK
     Route: 065
     Dates: start: 20141014
  32. VALSARTAN [Suspect]
     Active Substance: VALSARTAN
     Dosage: UNK
     Route: 065
     Dates: start: 20150611
  33. VALSARTAN [Suspect]
     Active Substance: VALSARTAN
     Dosage: UNK
     Route: 065
     Dates: start: 20150102
  34. VALSARTAN [Suspect]
     Active Substance: VALSARTAN
     Dosage: UNK
     Route: 065
     Dates: start: 20150415
  35. VALSARTAN [Suspect]
     Active Substance: VALSARTAN
     Dosage: UNK
     Route: 065
     Dates: start: 20160427
  36. VALSARTAN [Suspect]
     Active Substance: VALSARTAN
     Dosage: UNK
     Route: 065
     Dates: start: 20160804
  37. VALSARTAN [Suspect]
     Active Substance: VALSARTAN
     Dosage: UNK, QD (160 MG/12.5 MG)
     Route: 065
     Dates: start: 201407, end: 201410
  38. VALSARTAN [Suspect]
     Active Substance: VALSARTAN
     Dosage: UNK, QD
     Route: 065
     Dates: start: 201407
  39. VALSARTAN [Suspect]
     Active Substance: VALSARTAN
     Dosage: 80 MG
     Route: 065
     Dates: start: 201407
  40. VALSARTAN [Suspect]
     Active Substance: VALSARTAN
     Dosage: UNK
     Route: 065
     Dates: start: 201410
  41. CYCLOPHOSPHAMIDE [Suspect]
     Active Substance: CYCLOPHOSPHAMIDE
     Indication: Hodgkin^s disease
     Dosage: 750 MG/M2
     Route: 065
     Dates: start: 20160113
  42. PREDNISOLONE [Suspect]
     Active Substance: PREDNISOLONE
     Indication: Hodgkin^s disease
     Dosage: 40 MG, MG/M2 (80 MG), DAY 1 - 14, DAILY
     Route: 065
     Dates: start: 20160113, end: 20160126
  43. PREDNISOLONE [Suspect]
     Active Substance: PREDNISOLONE
     Dosage: 40 MG, MG/M2 (80 MG), DAY 1 - 14, DAILY
     Route: 065
     Dates: start: 20160113, end: 20160126
  44. BACLOFEN [Suspect]
     Active Substance: BACLOFEN
     Indication: Product used for unknown indication
     Dosage: 200 ?G, VIA PUMP
     Route: 058
  45. BACLOFEN [Suspect]
     Active Substance: BACLOFEN
     Dosage: 200 ?G, VIA PUMP
     Route: 058
  46. BACLOFEN [Suspect]
     Active Substance: BACLOFEN
     Dosage: 200 ?G, VIA PUMP
     Route: 058
  47. BACLOFEN [Suspect]
     Active Substance: BACLOFEN
     Dosage: 200 ?G, VIA PUMP
     Route: 065
  48. BACLOFEN [Suspect]
     Active Substance: BACLOFEN
     Dosage: UNK UNK, TID (200 ?G/20 MG VIA PUMP (1-1-1))
     Route: 058
  49. BACLOFEN [Suspect]
     Active Substance: BACLOFEN
     Dosage: 200 ?G, VIA PUMP
     Route: 065
  50. BACLOFEN [Suspect]
     Active Substance: BACLOFEN
     Dosage: 200 ?G, VIA PUMP
     Route: 065
  51. BACLOFEN [Suspect]
     Active Substance: BACLOFEN
     Dosage: 200 ?G, VIA PUMP
     Route: 065
  52. BACLOFEN [Suspect]
     Active Substance: BACLOFEN
     Dosage: 200 ?G, VIA PUMP
     Route: 058
  53. BACLOFEN [Suspect]
     Active Substance: BACLOFEN
     Dosage: 200 ?G, VIA PUMP
     Route: 058
  54. ETOPOSIDE [Suspect]
     Active Substance: ETOPOSIDE
     Indication: Hodgkin^s disease
     Dosage: 100 MG/M2, DAY 1-3
     Route: 065
     Dates: start: 20160113
  55. DIAZEPAM [Suspect]
     Active Substance: DIAZEPAM
     Indication: Back pain
     Dosage: 10 MG
     Route: 065
     Dates: start: 20150608
  56. DIAZEPAM [Suspect]
     Active Substance: DIAZEPAM
     Indication: Pain in extremity
  57. VALSARTAN [Suspect]
     Active Substance: VALSARTAN
     Indication: Hypertension
     Dosage: UNK UNK, QD (ONCE IN THE MORNING)
     Route: 065
     Dates: start: 2008
  58. VALSARTAN [Suspect]
     Active Substance: VALSARTAN
     Indication: Hypertension
  59. DOXORUBICIN HYDROCHLORIDE [Suspect]
     Active Substance: DOXORUBICIN HYDROCHLORIDE
     Indication: Hodgkin^s disease
     Dosage: 25 MG/M2 (DAY 1 AND DAY 15)
     Route: 065
     Dates: start: 20151027, end: 201512
  60. DOXORUBICIN HYDROCHLORIDE [Suspect]
     Active Substance: DOXORUBICIN HYDROCHLORIDE
     Dosage: 25 MG/M2 (DAY 1)
     Route: 065
     Dates: start: 20160113
  61. BLEOMYCIN [Suspect]
     Active Substance: BLEOMYCIN SULFATE
     Indication: Hodgkin^s disease
     Dosage: 25 MG/M2 (DAY 1 AND DAY 15)
     Route: 065
     Dates: start: 20151027, end: 201512
  62. BLEOMYCIN [Suspect]
     Active Substance: BLEOMYCIN SULFATE
     Dosage: 10 MG/M2, DAY 8
     Route: 065
     Dates: start: 20160120
  63. PIRITRAMIDE [Suspect]
     Active Substance: PIRITRAMIDE
     Indication: Back pain
     Dosage: 15 MG
     Route: 065
     Dates: start: 20150608
  64. PIRITRAMIDE [Suspect]
     Active Substance: PIRITRAMIDE
     Indication: Pain in extremity
  65. VINBLASTINE [Suspect]
     Active Substance: VINBLASTINE
     Indication: Hodgkin^s disease
     Dosage: 6 MG/M2, (DAY 1 AND DAY 15)
     Route: 065
     Dates: start: 20151027, end: 201512
  66. DACARBAZINE [Suspect]
     Active Substance: DACARBAZINE
     Indication: Hodgkin^s disease
     Dosage: 375 MG/M2, DAY 1 AND DAY 15
     Route: 065
     Dates: start: 20151027, end: 201512
  67. VINCRISTINE [Suspect]
     Active Substance: VINCRISTINE
     Indication: Hodgkin^s disease
     Dosage: 2 MG, ABSOLUTE, DAY 8
     Route: 065
     Dates: start: 20160120
  68. PROCARBAZINE [Suspect]
     Active Substance: PROCARBAZINE
     Indication: Hodgkin^s disease
     Dosage: 100 MG/M2 (200 MG), DAY 1-7, DAILY
     Route: 065
     Dates: start: 20190113, end: 20190119
  69. LENOGRASTIM [Suspect]
     Active Substance: LENOGRASTIM
     Indication: Neutropenia
     Dosage: UNK
     Route: 065
     Dates: start: 201511, end: 201511
  70. LENOGRASTIM [Suspect]
     Active Substance: LENOGRASTIM
     Dosage: UNK
     Route: 065
     Dates: start: 201511
  71. LENOGRASTIM [Suspect]
     Active Substance: LENOGRASTIM
     Dosage: UNK UNK, QD (1X 34, QD, 1X DAILY)
     Route: 065
     Dates: start: 20160120, end: 201601
  72. LENOGRASTIM [Suspect]
     Active Substance: LENOGRASTIM
     Dosage: UNK UNK, QD (1X 34, QD, 1X DAILY)
     Route: 065
     Dates: start: 20160203, end: 20160205
  73. NEULASTA [Suspect]
     Active Substance: PEGFILGRASTIM
     Indication: Neutropenia
     Dosage: UNK
     Route: 058
     Dates: start: 20151212, end: 20151212
  74. HYDROCHLOROTHIAZIDE\VALSARTAN [Concomitant]
     Active Substance: HYDROCHLOROTHIAZIDE\VALSARTAN
     Indication: Hypertension
     Dosage: UNK
     Route: 065
     Dates: start: 201704, end: 2017
  75. HYDROCHLOROTHIAZIDE\VALSARTAN [Concomitant]
     Active Substance: HYDROCHLOROTHIAZIDE\VALSARTAN
     Indication: Hypertension
     Dosage: UNK
     Route: 065
     Dates: start: 20170411
  76. HYDROCHLOROTHIAZIDE\VALSARTAN [Concomitant]
     Active Substance: HYDROCHLOROTHIAZIDE\VALSARTAN
     Dosage: UNK
     Route: 065
     Dates: start: 20170725
  77. VALSARTAN [Concomitant]
     Active Substance: VALSARTAN
     Indication: Hypertension
     Dosage: UNK
     Route: 065
     Dates: start: 201301
  78. VALSARTAN [Concomitant]
     Active Substance: VALSARTAN
     Dosage: UNK
     Route: 065
     Dates: start: 20130124
  79. MORPHINE [Concomitant]
     Active Substance: MORPHINE
     Indication: Pain
     Dosage: UNK, VIA PUMP
     Route: 065
  80. MORPHINE [Concomitant]
     Active Substance: MORPHINE
     Dosage: UNK, VIA PUMP
     Route: 065
  81. MORPHINE [Concomitant]
     Active Substance: MORPHINE
     Dosage: UNK, VIA PUMP
     Route: 065
  82. MORPHINE [Concomitant]
     Active Substance: MORPHINE
     Dosage: UNK, VIA PUMP
     Route: 065
  83. MOVICOL [Concomitant]
     Active Substance: POLYETHYLENE GLYCOL 3350\POTASSIUM CHLORIDE\SODIUM BICARBONATE\SODIUM CHLORIDE
     Indication: Product used for unknown indication
     Dosage: 1 DF SACHET, 1X IF NEEDED
     Route: 065
  84. HYDROMORPHONE [Concomitant]
     Active Substance: HYDROMORPHONE
     Indication: Product used for unknown indication
     Dosage: 8 MG, BID
     Route: 065
     Dates: end: 201511
  85. CLORAZEPATE DIPOTASSIUM [Concomitant]
     Active Substance: CLORAZEPATE DIPOTASSIUM
     Indication: Product used for unknown indication
     Dosage: 10 MG, QD (1X 10 MG, QD, 1X DAILY (MORNING))
     Route: 065
  86. CLORAZEPATE DIPOTASSIUM [Concomitant]
     Active Substance: CLORAZEPATE DIPOTASSIUM
     Dosage: 15 MG, QD (1X 15 MG, QD, 1X DAILY (EVENING OR NIGHT))
     Route: 065
  87. CLORAZEPATE DIPOTASSIUM [Concomitant]
     Active Substance: CLORAZEPATE DIPOTASSIUM
     Dosage: 10 MG, BID (1X 10 MG, BID, 2X DAILY (MORNING AND EVENING)
     Route: 065
  88. DIAZEPAM [Concomitant]
     Active Substance: DIAZEPAM
     Indication: Product used for unknown indication
     Dosage: UNK, QD (1X 2.5, QD, 1X DAILY (MORNING))
     Route: 065
  89. DIAZEPAM [Concomitant]
     Active Substance: DIAZEPAM
     Dosage: UNK, QD (1X 2.5, QD, 1X DAILY (EVENING))
     Route: 065
  90. DIAZEPAM [Concomitant]
     Active Substance: DIAZEPAM
     Dosage: UNK, QD (1X 2.5, QD, 1X DAILY (EVENING))
     Route: 065
  91. DIAZEPAM [Concomitant]
     Active Substance: DIAZEPAM
     Dosage: UNK, QD (1X 2.5, QD, 1X DAILY (MORNING))
     Route: 065
  92. DIAZEPAM [Concomitant]
     Active Substance: DIAZEPAM
     Dosage: UNK, QD (1X 2.5, QD, 1X DAILY (MORNING))
     Route: 065
  93. DIAZEPAM [Concomitant]
     Active Substance: DIAZEPAM
     Dosage: UNK, QD (1X 2.5, QD, 1X DAILY (EVENING))
     Route: 065
  94. DIAZEPAM [Concomitant]
     Active Substance: DIAZEPAM
     Dosage: UNK, QD (1X 2.5, QD, 1X DAILY (MORNING))
     Route: 065
  95. CITALOPRAM [Concomitant]
     Active Substance: CITALOPRAM HYDROBROMIDE
     Indication: Product used for unknown indication
     Dosage: UNK UNK, QD (1X 20, 1X DAILY (MORNING))
     Route: 065
  96. CITALOPRAM [Concomitant]
     Active Substance: CITALOPRAM HYDROBROMIDE
     Dosage: UNK UNK, QD (1X 20, 1X DAILY (MORNING))
     Route: 065
  97. CITALOPRAM [Concomitant]
     Active Substance: CITALOPRAM HYDROBROMIDE
     Dosage: UNK UNK, QD (1X 20, 1X DAILY (MORNING))
     Route: 065
  98. CITALOPRAM [Concomitant]
     Active Substance: CITALOPRAM HYDROBROMIDE
     Dosage: UNK UNK, QD (1X 20, 1X DAILY (MORNING))
     Route: 065
  99. LYRICA [Concomitant]
     Active Substance: PREGABALIN
     Indication: Product used for unknown indication
     Dosage: UNK UNK, BID (1X 150, 2X DAILY (MORNING AND EVENING))
     Route: 065
  100. LYRICA [Concomitant]
     Active Substance: PREGABALIN
     Dosage: UNK (1X 150, 1X, STOP DATE: FEB/MAR 2016)
     Route: 065
     Dates: start: 2016
  101. LYRICA [Concomitant]
     Active Substance: PREGABALIN
     Dosage: UNK UNK, BID (1X 150, 2X DAILY (MORNING AND EVENING))
     Route: 065
     Dates: start: 2016
  102. LYRICA [Concomitant]
     Active Substance: PREGABALIN
     Dosage: UNK (1X 150, 1X, STOP DATE:FEB/MAR 2016)
     Route: 065
     Dates: start: 2016
  103. LYRICA [Concomitant]
     Active Substance: PREGABALIN
     Dosage: UNK UNK, BID (1X 150, 2X DAILY (MORNING AND EVENING))
     Route: 065
     Dates: start: 2016
  104. LYRICA [Concomitant]
     Active Substance: PREGABALIN
     Dosage: UNK UNK, QD  (1X 75, 1X DAILY (EVENING), START DATE: FEB/MAR 2016)
     Route: 065
     Dates: start: 2016
  105. LYRICA [Concomitant]
     Active Substance: PREGABALIN
     Dosage: UNK UNK, QD (2X 75, 1X DAILY (MORNING), START DATE:FEB/MAR 2016)
     Route: 065
     Dates: start: 2016
  106. LYRICA [Concomitant]
     Active Substance: PREGABALIN
     Dosage: UNK (1X 150, 1X, STOP DATE:FEB/MAR 2016)
     Route: 065
     Dates: start: 2016
  107. LYRICA [Concomitant]
     Active Substance: PREGABALIN
     Dosage: UNK (1X 150, 1X, STOP DATE:FEB/MAR 2016)
     Route: 065
     Dates: start: 2016
  108. LYRICA [Concomitant]
     Active Substance: PREGABALIN
     Dosage: UNK UNK, BID (1X 150, 2X DAILY (MORNING AND EVENING))
     Route: 065
     Dates: start: 2016
  109. LYRICA [Concomitant]
     Active Substance: PREGABALIN
     Dosage: UNK UNK, BID (1X 150, 2X DAILY (MORNING AND EVENING))
     Route: 065
     Dates: start: 2016
  110. LYRICA [Concomitant]
     Active Substance: PREGABALIN
     Dosage: UNK UNK, BID (1X 150, 2X DAILY (MORNING AND EVENING))
     Route: 065
     Dates: start: 2016
  111. LYRICA [Concomitant]
     Active Substance: PREGABALIN
     Dosage: UNK UNK, BID (1X 150, 2X DAILY (MORNING AND EVENING))
     Route: 065
     Dates: start: 2016
  112. LYRICA [Concomitant]
     Active Substance: PREGABALIN
     Dosage: UNK (1X 150, 1X, STOP DATE:FEB/MAR 2016)
     Route: 065
     Dates: start: 2016
  113. LYRICA [Concomitant]
     Active Substance: PREGABALIN
     Dosage: UNK (1X 150, 1X, STOP DATE:FEB/MAR 2016)
     Route: 065
     Dates: start: 2016
  114. LYRICA [Concomitant]
     Active Substance: PREGABALIN
     Dosage: UNK UNK, BID (1X 150, 2X DAILY (MORNING AND EVENING))
     Route: 065
     Dates: start: 2016
  115. LYRICA [Concomitant]
     Active Substance: PREGABALIN
     Dosage: UNK UNK, QD (2X 75, 1X DAILY (MORNING), START DATE:FEB/MAR 2016)
     Route: 065
     Dates: start: 2016
  116. LYRICA [Concomitant]
     Active Substance: PREGABALIN
     Dosage: UNK UNK, QD  (1X 75, 1X DAILY (EVENING), START DATE: FEB/MAR 2016)
     Route: 065
     Dates: start: 2016
  117. LYRICA [Concomitant]
     Active Substance: PREGABALIN
     Dosage: UNK (1X 150, 1X, STOP DATE:FEB/MAR 2016)
     Route: 065
     Dates: start: 2016
  118. PANTOZOL [Concomitant]
     Active Substance: PANTOPRAZOLE SODIUM
     Indication: Product used for unknown indication
     Dosage: UNK UNK, QD (1X 40, 1X DAILY (MORNING))
     Route: 065
  119. PANTOZOL [Concomitant]
     Active Substance: PANTOPRAZOLE SODIUM
     Dosage: UNK UNK, QD (1X 40, 1X DAILY (EVENING))
     Route: 065
  120. PANTOZOL [Concomitant]
     Active Substance: PANTOPRAZOLE SODIUM
     Dosage: 40 MG, QD
     Route: 065
  121. PANTOZOL [Concomitant]
     Active Substance: PANTOPRAZOLE SODIUM
     Dosage: UNK UNK, QD (1X 40, 1X DAILY (EVENING))
     Route: 065
  122. PANTOZOL [Concomitant]
     Active Substance: PANTOPRAZOLE SODIUM
     Dosage: UNK UNK, QD (1X 40, 1X DAILY (MORNING))
     Route: 065
  123. SULFAMETHOXAZOLE\TRIMETHOPRIM [Concomitant]
     Active Substance: SULFAMETHOXAZOLE\TRIMETHOPRIM
     Indication: Pneumonia
     Dosage: 1 DF, BID (ON SATURDAY AND SUNDAY)
     Route: 065
  124. MOTILIUM [Concomitant]
     Active Substance: DOMPERIDONE
     Indication: Product used for unknown indication
     Dosage: 1 DF, QID (1 SACHET, 4X DAILY)
     Route: 065
  125. MOTILIUM [Concomitant]
     Active Substance: DOMPERIDONE
     Dosage: 10 MG, TID (10 MG, ONCE IN THE MORNING, NOON AND EVENING)
     Route: 048
  126. MOTILIUM [Concomitant]
     Active Substance: DOMPERIDONE
     Dosage: 1 DF, QID (1 SACHET, 4X DAILY)
     Route: 065
  127. MOTILIUM [Concomitant]
     Active Substance: DOMPERIDONE
     Dosage: 1 DF, QID (1 SACHET, 4X DAILY)
     Route: 065
  128. MOTILIUM [Concomitant]
     Active Substance: DOMPERIDONE
     Dosage: 10 MG, TID (10 MG, ONCE IN THE MORNING, NOON AND EVENING)
     Route: 048
  129. MOTILIUM [Concomitant]
     Active Substance: DOMPERIDONE
     Dosage: 1 DF, QID (1 SACHET, 4X DAILY)
     Route: 065
  130. LEVOTHYROXINE [Concomitant]
     Active Substance: LEVOTHYROXINE
     Indication: Product used for unknown indication
     Dosage: UNK
     Route: 065
  131. LEVOTHYROXINE [Concomitant]
     Active Substance: LEVOTHYROXINE
     Dosage: UNK
     Route: 065
  132. CLONIDINE [Concomitant]
     Active Substance: CLONIDINE
     Indication: Hypertension
     Dosage: UNK UNK, BID (1X 0.5 MG)
     Route: 065
  133. CLONIDINE [Concomitant]
     Active Substance: CLONIDINE
     Dosage: 0.5 MG, BID (2X 0.5 MG)
     Route: 065
  134. CLONIDINE [Concomitant]
     Active Substance: CLONIDINE
     Dosage: 0.15 UG, BID (1-0-1 IN MORNING AND EVENING)
     Route: 016
  135. CLONIDINE [Concomitant]
     Active Substance: CLONIDINE
     Dosage: UNK UNK, BID (1X 0.5 MG)
     Route: 065
  136. CLONIDINE [Concomitant]
     Active Substance: CLONIDINE
     Dosage: 50 MG (50 MG (ONCE IN THE MORNING, ONCE IN THE EVENING (1-0-1 / 2X1))
     Route: 065
  137. BACLOFEN [Concomitant]
     Active Substance: BACLOFEN
     Indication: Product used for unknown indication
     Dosage: 80 UG, QD (VIA PUMP)
     Route: 065
     Dates: start: 2015
  138. BACLOFEN [Concomitant]
     Active Substance: BACLOFEN
     Dosage: 80 UG, QD (VIA PUMP)
     Route: 065
     Dates: start: 2015
  139. BACLOFEN [Concomitant]
     Active Substance: BACLOFEN
     Dosage: 50 UG, QD (VIA PUMP)
     Route: 065
     Dates: start: 2015, end: 2015
  140. BACLOFEN [Concomitant]
     Active Substance: BACLOFEN
     Dosage: UNK
     Route: 048
     Dates: start: 20170704, end: 20170712
  141. BACLOFEN [Concomitant]
     Active Substance: BACLOFEN
     Dosage: 25 MG, QID (1-1-1-1 ONCE IN MORNING, NOON, AFTERNOON, EVENING)
     Route: 048
     Dates: start: 20180102
  142. BACLOFEN [Concomitant]
     Active Substance: BACLOFEN
     Dosage: UNK (125 UG/24 HOURS 2000 UG/ML VIA PUMP)
     Route: 065
     Dates: start: 20180228
  143. BACLOFEN [Concomitant]
     Active Substance: BACLOFEN
     Dosage: UNK UNK, TID (25/20 MG IN MORNING, 20 MG IN NOON, 20 MG IN THE EVENING)
     Route: 065
  144. BACLOFEN [Concomitant]
     Active Substance: BACLOFEN
     Dosage: UNK UNK, TID (25/20 MG IN MORNING, 20 MG IN NOON, 20 MG IN THE EVENING)
     Route: 065
  145. BACLOFEN [Concomitant]
     Active Substance: BACLOFEN
     Dosage: UNK
     Route: 048
     Dates: start: 20140704, end: 20140712
  146. BACLOFEN [Concomitant]
     Active Substance: BACLOFEN
     Dosage: 25 MG, QID (1-1-1-1 ONCE IN MORNING, NOON, AFTERNOON, EVENING)
     Route: 048
     Dates: start: 20180102
  147. ENOXAPARIN SODIUM [Concomitant]
     Active Substance: ENOXAPARIN SODIUM
     Indication: Thrombosis prophylaxis
     Dosage: 40 MG, QD
     Route: 065
  148. CHOLECALCIFEROL [Concomitant]
     Active Substance: CHOLECALCIFEROL
     Indication: Product used for unknown indication
     Dosage: 100 MG, QD (IN THE MORNING)
     Route: 065
  149. SULFAMETHOXAZOLE\TRIMETHOPRIM [Concomitant]
     Active Substance: SULFAMETHOXAZOLE\TRIMETHOPRIM
     Indication: Pneumonia
     Dosage: UNK
     Route: 065
  150. SULFAMETHOXAZOLE\TRIMETHOPRIM [Concomitant]
     Active Substance: SULFAMETHOXAZOLE\TRIMETHOPRIM
     Dosage: UNK
     Route: 065

REACTIONS (27)
  - Hodgkin^s disease [Unknown]
  - Hypothyroidism [Unknown]
  - Klebsiella infection [Unknown]
  - Pulmonary congestion [Unknown]
  - Basal ganglion degeneration [Unknown]
  - Drug abuse [Unknown]
  - Candida infection [Unknown]
  - Dysphagia [Unknown]
  - Bone pain [Recovering/Resolving]
  - Fall [Unknown]
  - Tissue infiltration [Unknown]
  - Headache [Unknown]
  - Viral infection [Unknown]
  - Pyrexia [Recovered/Resolved]
  - Arthralgia [Unknown]
  - Obesity [Unknown]
  - Drug intolerance [Unknown]
  - Myalgia [Unknown]
  - Dizziness [Unknown]
  - Hepatic steatosis [Unknown]
  - Uterine enlargement [Unknown]
  - Lung disorder [Unknown]
  - Renal cyst [Unknown]
  - Sleep apnoea syndrome [Unknown]
  - Sleep disorder [Unknown]
  - Inguinal hernia [Unknown]
  - Hyperhidrosis [Unknown]

NARRATIVE: CASE EVENT DATE: 20140101
